FAERS Safety Report 8246615-4 (Version None)
Quarter: 2012Q1

REPORT INFORMATION
  Report Type: 
  Country: None (occurrence: None)
  Receive Date: 20120330
  Receipt Date: 20120326
  Transmission Date: 20120608
  Serious: Yes (Hospitalization)
  Sender: FDA-Public Use
  Company Number: JP-PFIZER INC-2012077605

PATIENT
  Age: 65 Year
  Sex: Female

DRUGS (2)
  1. SILDENAFIL CITRATE [Suspect]
     Indication: PULMONARY HYPERTENSION
     Dosage: 60 MG/DAY
     Route: 048
     Dates: start: 20111114, end: 20120313
  2. SILDENAFIL CITRATE [Suspect]
     Dosage: 40 MG/DAY
     Route: 048
     Dates: start: 20120314, end: 20120319

REACTIONS (1)
  - HEPATIC FUNCTION ABNORMAL [None]
